FAERS Safety Report 7352000-X (Version None)
Quarter: 2011Q1

REPORT INFORMATION
  Report Type: 
  Country: None (occurrence: None)
  Receive Date: 20110315
  Receipt Date: 20110311
  Transmission Date: 20110831
  Serious: No
  Sender: FDA-Public Use
  Company Number: US-PFIZER INC-2011055197

PATIENT
  Sex: Female

DRUGS (2)
  1. LYRICA [Suspect]
     Dosage: 225 MG, 3X/DAY
  2. LYRICA [Suspect]
     Indication: NEURALGIA
     Dosage: 300 MG, 4X/DAY

REACTIONS (2)
  - JOINT SWELLING [None]
  - DRUG INEFFECTIVE [None]
